FAERS Safety Report 6902211-X (Version None)
Quarter: 2010Q3

REPORT INFORMATION
  Report Type: 
  Country: None (occurrence: None)
  Receive Date: 20100803
  Receipt Date: 20080501
  Transmission Date: 20110219
  Serious: No
  Sender: FDA-Public Use
  Company Number: US-PFIZER INC-2008038967

PATIENT
  Sex: Female
  Weight: 54.545 kg

DRUGS (5)
  1. LYRICA [Suspect]
     Indication: INSOMNIA
     Route: 048
     Dates: start: 20080429
  2. LYRICA [Suspect]
     Indication: PAIN
  3. COSOPT [Concomitant]
     Dates: start: 19880101
  4. XALATAN [Concomitant]
     Dates: start: 19880101
  5. ACTONEL [Concomitant]
     Route: 048
     Dates: start: 20060101

REACTIONS (2)
  - ABDOMINAL PAIN UPPER [None]
  - DIARRHOEA [None]
